FAERS Safety Report 8257471-2 (Version None)
Quarter: 2012Q1

REPORT INFORMATION
  Report Type: 
  Country: None (occurrence: None)
  Receive Date: 20120330
  Receipt Date: 20120330
  Transmission Date: 20120608
  Serious: Yes (Life-Threatening, Hospitalization)
  Sender: FDA-Public Use
  Company Number: None

PATIENT
  Age: 64 Year
  Sex: Male
  Weight: 90.7194 kg

DRUGS (2)
  1. BENAZEPRIL HYDROCHLORIDE [Suspect]
     Indication: BLOOD PRESSURE
     Dosage: 1 TAB 24 HRS ORAL
     Route: 048
  2. CYCLOBENZAPRINE [Suspect]
     Indication: BACK PAIN
     Dosage: 1/2 - TAB 8 HRS ORAL ONLY 2 DOSES
     Route: 048

REACTIONS (4)
  - SWOLLEN TONGUE [None]
  - LIP SWELLING [None]
  - TONGUE DISCOLOURATION [None]
  - SWELLING FACE [None]
